FAERS Safety Report 7435635-5 (Version None)
Quarter: 2011Q2

REPORT INFORMATION
  Report Type: 
  Country: None (occurrence: None)
  Receive Date: 20110425
  Receipt Date: 20110315
  Transmission Date: 20111010
  Serious: No
  Sender: FDA-Public Use
  Company Number: US-MYLANLABS-2011S1005593

PATIENT
  Age: 61 Year
  Sex: Male

DRUGS (4)
  1. CLONIDINE [Suspect]
     Indication: BLOOD PRESSURE
     Dosage: CHANGED TWICE WEEKLY
     Route: 062
     Dates: start: 20110310, end: 20110314
  2. CLONIDINE [Concomitant]
     Route: 048
  3. CLONIDINE [Suspect]
     Dosage: CHANGED TWICE WEEKLY
     Route: 062
     Dates: start: 20110314, end: 20110318
  4. CLONIDINE [Suspect]
     Route: 062
     Dates: start: 20110318

REACTIONS (2)
  - DRUG INEFFECTIVE [None]
  - BLOOD PRESSURE INCREASED [None]
